FAERS Safety Report 5592974-0 (Version None)
Quarter: 2008Q1

REPORT INFORMATION
  Report Type: 
  Country: None (occurrence: None)
  Receive Date: 20080116
  Receipt Date: 20080110
  Transmission Date: 20080703
  Serious: Yes (Hospitalization)
  Sender: FDA-Public Use
  Company Number: FI-JNJFOC-20080102981

PATIENT
  Sex: Female

DRUGS (4)
  1. REMICADE [Suspect]
     Route: 042
  2. REMICADE [Suspect]
     Indication: MIXED CONNECTIVE TISSUE DISEASE
     Route: 042
  3. METHYLPREDNISOLONE [Concomitant]
     Indication: PREMEDICATION
  4. CETIRIZINE HCL [Concomitant]

REACTIONS (1)
  - ANAPHYLACTIC REACTION [None]
